FAERS Safety Report 8457736-5 (Version None)
Quarter: 2012Q2

REPORT INFORMATION
  Report Type: 
  Country: None (occurrence: None)
  Receive Date: 20120622
  Receipt Date: 20120614
  Transmission Date: 20120825
  Serious: Yes (Other)
  Sender: FDA-Public Use
  Company Number: US-BAYER-2012-059561

PATIENT
  Age: 26 Year
  Sex: Female

DRUGS (1)
  1. MIRENA [Suspect]
     Dosage: 20 ?G/D, CONT
     Route: 015
     Dates: start: 20090101

REACTIONS (11)
  - MENSTRUATION IRREGULAR [None]
  - UTERINE INFLAMMATION [None]
  - OLIGOMENORRHOEA [None]
  - NAUSEA [None]
  - VAGINAL HAEMORRHAGE [None]
  - ABDOMINAL PAIN [None]
  - PREGNANCY WITH CONTRACEPTIVE DEVICE [None]
  - HYPOMENORRHOEA [None]
  - HUNGER [None]
  - DIZZINESS [None]
  - BREAST TENDERNESS [None]
